FAERS Safety Report 8302124-5 (Version None)
Quarter: 2012Q2

REPORT INFORMATION
  Report Type: 
  Country: None (occurrence: None)
  Receive Date: 20120420
  Receipt Date: 20120418
  Transmission Date: 20120825
  Serious: Yes (Death)
  Sender: FDA-Public Use
  Company Number: DE-JNJFOC-20120408811

PATIENT
  Age: 70 Year
  Sex: Female

DRUGS (3)
  1. ABCIXIMAB [Suspect]
     Route: 040
  2. TISSUE PLASMINOGEN ACTIVATOR [Suspect]
     Indication: BASILAR ARTERY OCCLUSION
     Route: 013
  3. ABCIXIMAB [Suspect]
     Indication: BASILAR ARTERY OCCLUSION
     Dosage: INFUSION
     Route: 040

REACTIONS (1)
  - CEREBRAL HAEMORRHAGE [None]
